FAERS Safety Report 9254996 (Version 1)
Quarter: 2013Q2

REPORT INFORMATION
  Report Type: Spontaneous
  Country: US (occurrence: US)
  Receive Date: 20130425
  Receipt Date: 20130425
  Transmission Date: 20140414
  Serious: Yes (Hospitalization)
  Sender: FDA-Public Use
  Company Number: US-PFIZER INC-2013128099

PATIENT
  Age: 64 Year
  Sex: Female
  Weight: 61.22 kg

DRUGS (7)
  1. NORVASC [Suspect]
     Indication: BLOOD PRESSURE ABNORMAL
     Dosage: 10 MG, 1X/DAY
  2. LYRICA [Suspect]
     Indication: PAIN
     Dosage: 50 MG, 3X/DAY
     Dates: start: 2007
  3. PERCOCET [Suspect]
     Indication: PAIN
     Dosage: 7.5/325 MG, 3X/DAY
  4. TOPROL [Concomitant]
     Indication: BLOOD PRESSURE ABNORMAL
     Dosage: 100 MG, 1X/DAY
  5. CYMBALTA [Concomitant]
     Indication: NERVOUS SYSTEM DISORDER
     Dosage: 50 MG, UNK
  6. MEGACE ES [Concomitant]
     Dosage: 625 MG/5ML
  7. WARFARIN [Concomitant]
     Indication: THROMBOSIS
     Dosage: 4 MG, UNK

REACTIONS (1)
  - Back disorder [Unknown]
